FAERS Safety Report 9862865 (Version 1)
Quarter: 2014Q1

REPORT INFORMATION
  Report Type: Spontaneous
  Country: DE (occurrence: DE)
  Receive Date: 20140203
  Receipt Date: 20140203
  Transmission Date: 20141002
  Serious: Yes (Life-Threatening, Hospitalization, Disabling)
  Sender: FDA-Public Use
  Company Number: PHHY2014DE009307

PATIENT
  Age: 63 Year
  Sex: Male
  Weight: 85 kg

DRUGS (9)
  1. CERTOPARIN SODIUM [Suspect]
     Indication: THROMBOSIS PROPHYLAXIS
     Dosage: 3000 IU, QD
     Route: 058
     Dates: start: 20131203, end: 20131217
  2. HEPARIN [Suspect]
     Indication: ATRIAL FIBRILLATION
     Dosage: 30000 IU, UNK
     Route: 042
     Dates: start: 20131218, end: 20131222
  3. SUFENTANIL [Concomitant]
     Indication: ANALGESIC THERAPY
     Dosage: 80 UG, 1HOUR
     Route: 042
     Dates: start: 20131217
  4. PROPOFOL [Concomitant]
     Indication: SEDATION
     Dosage: 120 MG, 1HOUR
     Route: 042
     Dates: start: 20131217, end: 20131218
  5. ISOFLURAN [Concomitant]
     Indication: SEDATION
     Dosage: 0.5 %, EXPIRATORISCH
     Route: 055
     Dates: start: 20131218
  6. ARTERENOL [Concomitant]
     Indication: SEPTIC SHOCK
     Dosage: 0.1-0.3 MG/KG/MIN
     Route: 042
     Dates: start: 20131217, end: 20131223
  7. PIPERACILLIN W/TAZOBACTAM [Concomitant]
     Indication: SEPSIS
     Dosage: 13.5 G, DAILY
     Route: 042
     Dates: start: 20131217, end: 20131219
  8. MEROPENEM [Concomitant]
     Indication: SEPSIS
     Dosage: 4 G, DAILY
     Route: 042
     Dates: start: 20131219, end: 20131225
  9. PANTOPRAZOL [Concomitant]
     Indication: PROPHYLAXIS
     Dosage: 40 MG, QD
     Route: 042
     Dates: start: 20131217

REACTIONS (5)
  - Acute myocardial infarction [Not Recovered/Not Resolved]
  - Peripheral arterial occlusive disease [Not Recovered/Not Resolved]
  - Femoral artery occlusion [Not Recovered/Not Resolved]
  - Microembolism [Not Recovered/Not Resolved]
  - Heparin-induced thrombocytopenia [Not Recovered/Not Resolved]
